FAERS Safety Report 20339195 (Version 2)
Quarter: 2024Q2

REPORT INFORMATION
  Report Type: Other
  Country: US (occurrence: None)
  Receive Date: 20220117
  Receipt Date: 20240510
  Transmission Date: 20240716
  Serious: Yes (Death)
  Sender: FDA-Public Use
  Company Number: US-ROCHE-2999785

PATIENT
  Sex: Male
  Weight: 106.24 kg

DRUGS (21)
  1. OCREVUS [Suspect]
     Active Substance: OCRELIZUMAB
     Indication: Multiple sclerosis
     Route: 042
  2. OCREVUS [Suspect]
     Active Substance: OCRELIZUMAB
     Route: 042
  3. XANAX [Concomitant]
     Active Substance: ALPRAZOLAM
     Route: 048
  4. TENORMIN [Concomitant]
     Active Substance: ATENOLOL
     Route: 048
  5. AMPYRA [Concomitant]
     Active Substance: DALFAMPRIDINE
     Route: 048
  6. PENNSAID [Concomitant]
     Active Substance: DICLOFENAC SODIUM
     Dosage: 2 PUMP
     Route: 061
  7. VOLTAREN [Concomitant]
     Active Substance: DICLOFENAC SODIUM
     Route: 048
  8. FOLVITE [Concomitant]
     Active Substance: FOLIC ACID
     Route: 048
  9. NEURONTIN [Concomitant]
     Active Substance: GABAPENTIN
  10. COPAXONE [Concomitant]
     Active Substance: GLATIRAMER ACETATE
     Dosage: MONDAY, WEDNESDAY AND FRIDAY
     Route: 058
  11. NORCO [Concomitant]
     Active Substance: ACETAMINOPHEN\HYDROCODONE BITARTRATE
     Indication: Pain
     Dosage: 5-325 MG
     Route: 048
  12. ZESTRIL [Concomitant]
     Active Substance: LISINOPRIL
  13. PRILOSEC [Concomitant]
     Active Substance: OMEPRAZOLE MAGNESIUM
     Dosage: BEFORE BREAKFAST
     Route: 048
  14. ZOFRAN [Concomitant]
     Active Substance: ONDANSETRON HYDROCHLORIDE
     Indication: Nausea
     Route: 048
  15. DELTASONE [Concomitant]
     Active Substance: PREDNISONE
  16. PHENERGAN [Concomitant]
     Active Substance: PROMETHAZINE HYDROCHLORIDE
     Indication: Nausea
     Route: 048
  17. ALDACTONE [Concomitant]
     Active Substance: SPIRONOLACTONE
     Route: 048
  18. CARAFATE [Concomitant]
     Active Substance: SUCRALFATE
     Route: 048
  19. ULTRAM ER [Concomitant]
     Active Substance: TRAMADOL HYDROCHLORIDE
     Route: 048
  20. DESYREL [Concomitant]
     Active Substance: TRAZODONE HYDROCHLORIDE
     Dosage: AT BEDTIME 1-2 TABLETS
  21. KENALOG [Concomitant]
     Active Substance: TRIAMCINOLONE ACETONIDE
     Route: 061

REACTIONS (1)
  - Hepatic cirrhosis [Fatal]
